FAERS Safety Report 5165444-1 (Version None)
Quarter: 2006Q4

REPORT INFORMATION
  Report Type: 
  Country: None (occurrence: None)
  Receive Date: 20061206
  Receipt Date: 20061011
  Transmission Date: 20070319
  Serious: Yes (Life-Threatening)
  Sender: FDA-Public Use
  Company Number: 2006AP04813

PATIENT
  Age: 15020 Day
  Sex: Female
  Weight: 37 kg

DRUGS (9)
  1. DIPRIVAN [Suspect]
     Indication: GENERAL ANAESTHESIA
     Route: 042
     Dates: start: 20060525, end: 20060525
  2. DIPRIVAN [Suspect]
     Dosage: CONTINUOUS ADMINISTRATION
     Route: 042
     Dates: start: 20060525, end: 20060525
  3. MARCAINE HYDROCHLORIDE PRESERVATIVE FREE [Concomitant]
     Indication: SPINAL ANAESTHESIA
     Route: 037
     Dates: start: 20060525, end: 20060525
  4. XYLOCAINE W/ EPINEPHRINE [Concomitant]
     Indication: EPIDURAL ANAESTHESIA
     Route: 008
     Dates: start: 20060525, end: 20060525
  5. LOXONIN [Concomitant]
     Indication: ANKLE FRACTURE
     Route: 048
     Dates: start: 20060523, end: 20060606
  6. MUCOSTA [Concomitant]
     Indication: GASTRITIS
     Route: 048
     Dates: start: 20060523, end: 20060606
  7. STADOL [Concomitant]
     Indication: SEDATION
     Route: 042
     Dates: start: 20060525, end: 20060525
  8. DORMICUM [Concomitant]
     Indication: SEDATION
     Route: 042
     Dates: start: 20060525, end: 20060525
  9. OXYGEN [Concomitant]
     Indication: SEDATION
     Route: 055
     Dates: start: 20060525, end: 20060525

REACTIONS (3)
  - FOAMING AT MOUTH [None]
  - NON-CARDIOGENIC PULMONARY OEDEMA [None]
  - OBSTRUCTIVE AIRWAYS DISORDER [None]
